FAERS Safety Report 9355058 (Version 2)
Quarter: 2013Q3

REPORT INFORMATION
  Report Type: Report from Study
  Country: AU (occurrence: AU)
  Receive Date: 20130619
  Receipt Date: 20130816
  Transmission Date: 20140515
  Serious: Yes (Disabling, Other)
  Sender: FDA-Public Use
  Company Number: AU-ROCHE-1043229

PATIENT
  Age: 80 Year
  Sex: Male

DRUGS (1)
  1. RANIBIZUMAB [Suspect]
     Indication: AGE-RELATED MACULAR DEGENERATION
     Route: 050
     Dates: start: 20091012

REACTIONS (4)
  - Hearing impaired [Unknown]
  - Vision blurred [Unknown]
  - Glaucoma [Not Recovered/Not Resolved]
  - Therapeutic response decreased [Unknown]
